FAERS Safety Report 11166576 (Version 1)
Quarter: 2015Q2

REPORT INFORMATION
  Report Type: Spontaneous
  Country: US (occurrence: US)
  Receive Date: 20150605
  Receipt Date: 20150605
  Transmission Date: 20150821
  Serious: No
  Sender: FDA-Public Use
  Company Number: US-JNJFOC-20150503056

PATIENT
  Sex: Male

DRUGS (1)
  1. CONCERTA [Suspect]
     Active Substance: METHYLPHENIDATE HYDROCHLORIDE
     Indication: ATTENTION DEFICIT/HYPERACTIVITY DISORDER
     Route: 048
     Dates: start: 201504

REACTIONS (5)
  - Abdominal pain [Not Recovered/Not Resolved]
  - Insomnia [Unknown]
  - Drug ineffective [Unknown]
  - Anxiety [Not Recovered/Not Resolved]
  - Impulsive behaviour [Not Recovered/Not Resolved]

NARRATIVE: CASE EVENT DATE: 2015
